FAERS Safety Report 10143595 (Version 1)
Quarter: 2014Q2

REPORT INFORMATION
  Report Type: Spontaneous
  Country: US (occurrence: None)
  Receive Date: 20140429
  Receipt Date: 20140429
  Transmission Date: 20141212
  Serious: Yes (Life-Threatening, Hospitalization, Disabling)
  Sender: FDA-Public Use
  Company Number: None

PATIENT
  Age: 13 Year
  Sex: Female
  Weight: 43.8 kg

DRUGS (4)
  1. ELTROMBOPAG [Suspect]
     Indication: IMMUNE THROMBOCYTOPENIC PURPURA
     Dosage: 2 TABLETS QD ORAL
     Route: 048
     Dates: start: 20140103, end: 20140216
  2. ELTROMBOPAG [Suspect]
     Indication: HAEMORRHAGE INTRACRANIAL
     Dosage: 2 TABLETS QD ORAL
     Route: 048
     Dates: start: 20140103, end: 20140216
  3. OGESTREL [Concomitant]
  4. PENICILLIN VK [Concomitant]

REACTIONS (4)
  - Subdural haemorrhage [None]
  - Platelet count increased [None]
  - Mesenteric vein thrombosis [None]
  - Portal vein thrombosis [None]
